FAERS Safety Report 8520656-1 (Version None)
Quarter: 2012Q3

REPORT INFORMATION
  Report Type: 
  Country: None (occurrence: None)
  Receive Date: 20120719
  Receipt Date: 20120716
  Transmission Date: 20120928
  Serious: Yes (Death)
  Sender: FDA-Public Use
  Company Number: GB-NOVOPROD-351167

PATIENT
  Age: 50 Year
  Sex: Male
  Weight: 131 kg

DRUGS (2)
  1. VICTOZA [Suspect]
     Dosage: 3.0 MG, QD
     Route: 058
     Dates: end: 20120426
  2. VICTOZA [Suspect]
     Indication: OBESITY
     Dosage: 0.6 MG, QD
     Route: 058
     Dates: start: 20110905

REACTIONS (1)
  - CARDIOMEGALY [None]
